FAERS Safety Report 4507515-6 (Version None)
Quarter: 2004Q4

REPORT INFORMATION
  Report Type: 
  Country: None (occurrence: None)
  Receive Date: 20041118
  Receipt Date: 20041105
  Transmission Date: 20050328
  Serious: Yes (Death)
  Sender: FDA-Public Use
  Company Number: 2004212867BR

PATIENT
  Age: 72 Year
  Sex: Female

DRUGS (2)
  1. GENOTROPIN [Suspect]
     Indication: BLOOD GROWTH HORMONE DECREASED
     Dosage: SUBCUTANEOUS
     Route: 058
     Dates: start: 20021101
  2. CYCLACUR (ESTRADIOL VALERATE, NORGESTREL) [Concomitant]

REACTIONS (4)
  - BRAIN NEOPLASM [None]
  - DIZZINESS [None]
  - GLIOSIS [None]
  - SYNCOPE [None]
